FAERS Safety Report 5224849-0 (Version None)
Quarter: 2007Q1

REPORT INFORMATION
  Report Type: 
  Country: None (occurrence: None)
  Receive Date: 20070131
  Receipt Date: 20070118
  Transmission Date: 20070707
  Serious: Yes (Hospitalization)
  Sender: FDA-Public Use
  Company Number: PHBS2007TW01275

PATIENT
  Age: 59 Year
  Sex: Male

DRUGS (2)
  1. IMIPRAMINE [Suspect]
     Indication: MAJOR DEPRESSION
     Dosage: 112 MG/DAY
  2. LITHIUM CARBONATE [Suspect]
     Indication: MAJOR DEPRESSION
     Dosage: 600 MG/DAY

REACTIONS (14)
  - ARTERIOSPASM CORONARY [None]
  - ATRIOVENTRICULAR BLOCK COMPLETE [None]
  - BLOOD CHOLESTEROL INCREASED [None]
  - BLOOD URIC ACID INCREASED [None]
  - CHEST DISCOMFORT [None]
  - CIRCULATORY COLLAPSE [None]
  - CONVULSION [None]
  - CORONARY ARTERY STENOSIS [None]
  - ELECTROCARDIOGRAM ST SEGMENT DEPRESSION [None]
  - ELECTROCARDIOGRAM ST SEGMENT ELEVATION [None]
  - MYOCARDIAL ISCHAEMIA [None]
  - RESUSCITATION [None]
  - SINUS TACHYCARDIA [None]
  - SYNCOPE [None]
